FAERS Safety Report 6425900-2 (Version None)
Quarter: 2009Q4

REPORT INFORMATION
  Report Type: 
  Country: None (occurrence: None)
  Receive Date: 20091030
  Receipt Date: 20091016
  Transmission Date: 20100525
  Serious: Yes (Death)
  Sender: FDA-Public Use
  Company Number: 2009AC000271

PATIENT
  Sex: Female
  Weight: 75.7507 kg

DRUGS (1)
  1. DIGOXIN [Suspect]
     Dosage: PO
     Route: 048

REACTIONS (5)
  - AORTIC STENOSIS [None]
  - ATRIAL PRESSURE INCREASED [None]
  - ECONOMIC PROBLEM [None]
  - LEFT VENTRICULAR HYPERTROPHY [None]
  - MULTIPLE INJURIES [None]
